FAERS Safety Report 7958474-5 (Version None)
Quarter: 2011Q4

REPORT INFORMATION
  Report Type: 
  Country: None (occurrence: None)
  Receive Date: 20111205
  Receipt Date: 20111128
  Transmission Date: 20120403
  Serious: Yes (Hospitalization, Other)
  Sender: FDA-Public Use
  Company Number: FR-BRISTOL-MYERS SQUIBB COMPANY-16099970

PATIENT
  Age: 76 Year
  Sex: Male
  Weight: 69 kg

DRUGS (2)
  1. HYDREA [Suspect]
     Indication: THROMBOCYTOSIS
  2. ASPEGIC 325 [Concomitant]

REACTIONS (5)
  - COUGH [None]
  - HAEMOGLOBIN DECREASED [None]
  - LUNG INFECTION [None]
  - WHITE BLOOD CELL COUNT INCREASED [None]
  - PYREXIA [None]
